FAERS Safety Report 16491923 (Version 1)
Quarter: 2019Q3

REPORT INFORMATION
  Report Type: Spontaneous
  Country: US (occurrence: US)
  Receive Date: 20190624
  Receipt Date: 20190624
  Transmission Date: 20191004
  Serious: Yes (Hospitalization)
  Sender: FDA-Public Use
  Company Number: None

PATIENT
  Age: 66 Year
  Sex: Male
  Weight: 78.02 kg

DRUGS (10)
  1. LORAZEPAM. [Concomitant]
     Active Substance: LORAZEPAM
  2. FISH OIL [Concomitant]
     Active Substance: FISH OIL
  3. SIMETHICONE (DIMETHICONE) [Concomitant]
     Active Substance: DIMETHICONE
  4. PREDNISONE. [Concomitant]
     Active Substance: PREDNISONE
  5. SOLU-MEDROL [Concomitant]
     Active Substance: METHYLPREDNISOLONE SODIUM SUCCINATE
  6. PGV-001 (PEPTIDES +POLY ICLC) [Suspect]
     Active Substance: INVESTIGATIONAL PRODUCT
     Indication: TRANSITIONAL CELL CARCINOMA URETHRA
     Dosage: 5 DOSES INTRA-CUTANEOUS INJECTION
     Dates: start: 20190513, end: 20190604
  7. ATEZOLIZUMAB 1200MG [Suspect]
     Active Substance: ATEZOLIZUMAB
     Indication: TRANSITIONAL CELL CARCINOMA URETHRA
     Route: 042
     Dates: start: 20190520
  8. SOLU-MEDROL [Concomitant]
     Active Substance: METHYLPREDNISOLONE SODIUM SUCCINATE
  9. BACTRIM [Concomitant]
     Active Substance: SULFAMETHOXAZOLE\TRIMETHOPRIM
  10. CLARITIN [Concomitant]
     Active Substance: LORATADINE

REACTIONS (1)
  - Alanine aminotransferase increased [None]

NARRATIVE: CASE EVENT DATE: 20190621
